FAERS Safety Report 4314020-9 (Version None)
Quarter: 2004Q1

REPORT INFORMATION
  Report Type: 
  Country: None (occurrence: None)
  Receive Date: 20040305
  Receipt Date: 20040223
  Transmission Date: 20041129
  Serious: No
  Sender: FDA-Public Use
  Company Number: 04H-087-0251136-00

PATIENT
  Age: 26 Year
  Sex: Female

DRUGS (2)
  1. VERAPAMIL HYDROCHLORIDE [Suspect]
     Indication: TACHYCARDIA
     Dosage: 10 MG, ONCE, INTRAVENOUS
     Route: 042
  2. ADENOSINE TRIPHOSPHATE [Suspect]
     Indication: TACHYCARDIA
     Dosage: REPEATED DOSES, INTRAVENOUS BOLUS
     Route: 040

REACTIONS (1)
  - AV DISSOCIATION [None]
